FAERS Safety Report 6188055-8 (Version None)
Quarter: 2009Q2

REPORT INFORMATION
  Report Type: 
  Country: None (occurrence: None)
  Receive Date: 20090513
  Receipt Date: 20090508
  Transmission Date: 20091009
  Serious: Yes (Hospitalization)
  Sender: FDA-Public Use
  Company Number: US-ASTRAZENECA-2009UW11738

PATIENT
  Age: 40 Year
  Sex: Female

DRUGS (9)
  1. SEROQUEL [Suspect]
     Indication: DEPRESSION
     Route: 048
     Dates: start: 20071101
  2. SEROQUEL [Suspect]
     Indication: INSOMNIA
     Route: 048
     Dates: start: 20071101
  3. WELLBUTRIN [Concomitant]
  4. XANAX [Concomitant]
  5. PRISTIQ [Concomitant]
  6. AMBIEN [Concomitant]
  7. SINGULAIR [Concomitant]
  8. FOLIC ACID [Concomitant]
  9. MAXALT [Concomitant]

REACTIONS (1)
  - PULMONARY EMBOLISM [None]
